FAERS Safety Report 8951652 (Version 1)
Quarter: 2012Q4

REPORT INFORMATION
  Report Type: Report from Study
  Country: US (occurrence: US)
  Receive Date: 20121204
  Receipt Date: 20121204
  Transmission Date: 20130627
  Serious: Yes (Hospitalization, Other)
  Sender: FDA-Public Use
  Company Number: US-ABBOTT-12P-163-1014026-00

PATIENT
  Age: 69 Year
  Sex: Female

DRUGS (12)
  1. HUMIRA PEN [Suspect]
     Indication: CROHN^S DISEASE
     Dates: start: 20110122
  2. PENTASA [Concomitant]
     Indication: CROHN^S DISEASE
  3. LOSARTAN [Concomitant]
     Indication: HYPERTENSION
     Dosage: 50-12.5 mg daily
  4. AZATHIOPRINE [Concomitant]
     Indication: PRODUCT USED FOR UNKNOWN INDICATION
     Dosage: 50 mg, 2 tabs in the pm
  5. OMEPRAZOLE [Concomitant]
     Indication: GASTROOESOPHAGEAL REFLUX DISEASE
     Dosage: 40 mg daily
  6. SIMVASTATIN [Concomitant]
     Indication: BLOOD CHOLESTEROL INCREASED
     Dosage: 40 mg daily
  7. SERTRALINE [Concomitant]
     Indication: NERVOUSNESS
     Dosage: 50 mg daily
  8. DICYCLOMINE [Concomitant]
     Indication: GASTROINTESTINAL DISORDER
  9. ZOFRAN [Concomitant]
     Indication: NAUSEA
  10. GAS-X [Concomitant]
     Indication: PRODUCT USED FOR UNKNOWN INDICATION
  11. LORAZEPAM [Concomitant]
     Indication: INSOMNIA
  12. OXYCODONE [Concomitant]
     Indication: PAIN
     Dosage: 5-325 mg, as required

REACTIONS (9)
  - Intestinal obstruction [Recovering/Resolving]
  - Abdominal pain [Recovering/Resolving]
  - Urinary tract infection [Unknown]
  - Crohn^s disease [Unknown]
  - Scar [Unknown]
  - Injection site pain [Unknown]
  - Incorrect dose administered [Unknown]
  - Asthenia [Unknown]
  - Fatigue [Unknown]
